FAERS Safety Report 5800891-3 (Version None)
Quarter: 2008Q3

REPORT INFORMATION
  Report Type: 
  Country: None (occurrence: None)
  Receive Date: 20080701
  Receipt Date: 20080615
  Transmission Date: 20090109
  Serious: Yes (Other)
  Sender: FDA-Public Use
  Company Number: GRP08000048

PATIENT
  Age: 69 Year
  Sex: Female

DRUGS (1)
  1. ACTONEL PLUS CALCIUM D(RISEDRONATE SODIUM 35 MG, CALCIUM CARBONATE 250 [Suspect]
     Indication: OSTEOPOROSIS
     Dosage: CYCLIC 1/D, ORAL
     Route: 048
     Dates: start: 20071116

REACTIONS (7)
  - DEEP VEIN THROMBOSIS [None]
  - GASTROINTESTINAL DISORDER [None]
  - MALAISE [None]
  - METASTASES TO LIVER [None]
  - PANCREATIC CARCINOMA [None]
  - PHLEBITIS [None]
  - RENAL CYST [None]
